FAERS Safety Report 6441035-7 (Version None)
Quarter: 2009Q4

REPORT INFORMATION
  Report Type: 
  Country: None (occurrence: None)
  Receive Date: 20091116
  Receipt Date: 20091106
  Transmission Date: 20100525
  Serious: Yes (Other)
  Sender: FDA-Public Use
  Company Number: US-ROCHE-667450

PATIENT
  Sex: Female

DRUGS (5)
  1. XELODA [Suspect]
     Route: 048
     Dates: start: 20080601, end: 20081101
  2. XELODA [Suspect]
     Dosage: 2 TABLETS IN THE MORNING AND 1 TABLET IN THE EVENING.
     Route: 048
     Dates: start: 20081101, end: 20090922
  3. CLARITIN-D [Concomitant]
  4. RESTASIS [Concomitant]
     Route: 047
  5. SYSTANE EYE DROPS [Concomitant]

REACTIONS (7)
  - EYE IRRITATION [None]
  - FATIGUE [None]
  - LACRIMATION INCREASED [None]
  - NASOPHARYNGITIS [None]
  - PALMAR-PLANTAR ERYTHRODYSAESTHESIA SYNDROME [None]
  - RHINORRHOEA [None]
  - TUMOUR MARKER INCREASED [None]
